FAERS Safety Report 7404356-7 (Version None)
Quarter: 2011Q2

REPORT INFORMATION
  Report Type: 
  Country: None (occurrence: None)
  Receive Date: 20110408
  Receipt Date: 20110324
  Transmission Date: 20111010
  Serious: Yes (Other)
  Sender: FDA-Public Use
  Company Number: US-BAYER-2011-026643

PATIENT
  Sex: Male

DRUGS (6)
  1. COENZYME Q10 [Concomitant]
  2. VITAMIN D [Concomitant]
  3. BAYER EXTRA STRENGTH PM [Suspect]
     Dosage: 2 DF, QD, BOTTLE COUNT 40S
     Route: 048
     Dates: start: 20110324, end: 20110324
  4. MULTI-VITAMIN [Concomitant]
  5. BAYER EXTRA STRENGTH PM [Suspect]
     Dosage: 2 DF, QD, BOTTLE COUNT 40S
     Route: 048
     Dates: start: 20110322, end: 20110323
  6. BAYER EXTRA STRENGTH PM [Suspect]
     Indication: SLEEP DISORDER THERAPY
     Dosage: 2 DF, QD, BOTTLE COUNT 40S
     Route: 048
     Dates: start: 20110312, end: 20110321

REACTIONS (3)
  - CHEST PAIN [None]
  - PALPITATIONS [None]
  - CARDIAC DISORDER [None]
